FAERS Safety Report 25524394 (Version 1)
Quarter: 2025Q3

REPORT INFORMATION
  Report Type: Spontaneous
  Country: DO (occurrence: None)
  Receive Date: 20250704
  Receipt Date: 20250704
  Transmission Date: 20251020
  Serious: Yes (Disabling)
  Sender: FDA-CTU
  Company Number: None

PATIENT
  Age: 42 Year
  Sex: Female
  Weight: 58.5 kg

DRUGS (4)
  1. ZICAM COLD REMEDY [Suspect]
     Active Substance: HOMEOPATHICS\ZINC ACETATE\ZINC GLUCONATE
     Indication: Nasopharyngitis
     Route: 050
  2. SYNTHROID [Suspect]
     Active Substance: LEVOTHYROXINE SODIUM
  3. MAGNESIUM [Suspect]
     Active Substance: MAGNESIUM
  4. nutrafol vitamins [Concomitant]

REACTIONS (4)
  - Rhinitis [None]
  - Headache [None]
  - Eye pain [None]
  - Eye pain [None]

NARRATIVE: CASE EVENT DATE: 20250523
